FAERS Safety Report 25431947 (Version 3)
Quarter: 2025Q3

REPORT INFORMATION
  Report Type: Report from Study
  Country: US (occurrence: US)
  Receive Date: 20250613
  Receipt Date: 20250730
  Transmission Date: 20251020
  Serious: Yes (Hospitalization, Other)
  Sender: ACADIA PHARMACEUTICALS
  Company Number: US-ACADIA PHARMACEUTICALS INC.-ACA-2025-PIM-006897

PATIENT
  Sex: Female

DRUGS (3)
  1. NUPLAZID [Suspect]
     Active Substance: PIMAVANSERIN TARTRATE
     Indication: Parkinson^s disease psychosis
     Dosage: 34 MILLIGRAM, QD
     Route: 048
     Dates: end: 202505
  2. NUPLAZID [Suspect]
     Active Substance: PIMAVANSERIN TARTRATE
     Indication: Dystonia
     Dosage: 34 MILLIGRAM, QD
     Route: 048
     Dates: start: 20250721
  3. NUPLAZID [Suspect]
     Active Substance: PIMAVANSERIN TARTRATE
     Indication: Parkinson^s disease

REACTIONS (9)
  - Hallucination, visual [Not Recovered/Not Resolved]
  - Hallucination [Unknown]
  - Confusional state [Unknown]
  - Abnormal dreams [Not Recovered/Not Resolved]
  - Nightmare [Not Recovered/Not Resolved]
  - Anxiety [Not Recovered/Not Resolved]
  - Disorientation [Unknown]
  - Aggression [Unknown]
  - Therapeutic product effect decreased [Not Recovered/Not Resolved]
